FAERS Safety Report 19409033 (Version 1)
Quarter: 2021Q2

REPORT INFORMATION
  Report Type: Spontaneous
  Country: CN (occurrence: CN)
  Receive Date: 20210613
  Receipt Date: 20210613
  Transmission Date: 20210717
  Serious: Yes (Other)
  Sender: FDA-Public Use
  Company Number: CN-BAXTER-2021BAX015101

PATIENT
  Age: 51 Year
  Sex: Male
  Weight: 50 kg

DRUGS (8)
  1. 0.9% SODIUM CHLORIDE INJECTION [Suspect]
     Active Substance: SODIUM CHLORIDE
     Dosage: NS 100 ML + PIRARUBICIN HYDROCHLORIDE 80 MG
     Route: 041
     Dates: start: 20210425, end: 20210425
  2. VINDESINE SULFATE [Suspect]
     Active Substance: VINDESINE SULFATE
     Indication: FOLLICULAR LYMPHOMA
     Dosage: VINDESINE SULFATE 5 MG + GS 500 ML
     Route: 041
     Dates: start: 20210425, end: 20210425
  3. PIRARUBICIN HYDROCHLORIDE [Suspect]
     Active Substance: PIRARUBICIN HYDROCHLORIDE
     Indication: FOLLICULAR LYMPHOMA
     Dosage: PIRARUBICIN HYDROCHLORIDE 80 MG + NS 100 ML
     Route: 041
     Dates: start: 20210425, end: 20210425
  4. HANLIKANG [Suspect]
     Active Substance: RITUXIMAB
     Indication: FOLLICULAR LYMPHOMA
     Dosage: RITUXIMAB 60 ML + NS 600 ML
     Route: 041
     Dates: start: 20210424, end: 20210424
  5. 5% GLUCOSE  INJECTION [Suspect]
     Active Substance: DEXTROSE
     Indication: MEDICATION DILUTION
     Dosage: GS 500 ML + VINDESINE SULFATE 5 MG
     Route: 041
     Dates: start: 20210425, end: 20210425
  6. 0.9% SODIUM CHLORIDE INJECTION [Suspect]
     Active Substance: SODIUM CHLORIDE
     Indication: MEDICATION DILUTION
     Dosage: NS 100 ML + CYCLOPHOSPHAMIDE 1.1 G
     Route: 041
     Dates: start: 20210425, end: 20210425
  7. ENDOXAN [Suspect]
     Active Substance: CYCLOPHOSPHAMIDE
     Indication: FOLLICULAR LYMPHOMA
     Dosage: CYCLOPHOSPHAMIDE 1.1 G + NS 100 ML
     Route: 041
     Dates: start: 20210425, end: 20210425
  8. 0.9% SODIUM CHLORIDE INJECTION [Suspect]
     Active Substance: SODIUM CHLORIDE
     Dosage: NS 600 ML + RITUXIMAB 60 ML
     Route: 041
     Dates: start: 20210424, end: 20210424

REACTIONS (1)
  - Myelosuppression [Recovering/Resolving]

NARRATIVE: CASE EVENT DATE: 20210511
